FAERS Safety Report 8383571-2 (Version None)
Quarter: 2012Q2

REPORT INFORMATION
  Report Type: 
  Country: None (occurrence: None)
  Receive Date: 20120524
  Receipt Date: 20120515
  Transmission Date: 20120825
  Serious: Yes (Life-Threatening, Hospitalization)
  Sender: FDA-Public Use
  Company Number: RU-BAYER-2012-047314

PATIENT
  Age: 62 Year
  Sex: Female

DRUGS (6)
  1. ASPIRIN [Suspect]
     Indication: MYALGIA
  2. ASPIRIN [Suspect]
     Indication: ASTHENIA
  3. ACETAMINOPHEN [Suspect]
     Indication: ASTHENIA
  4. ASPIRIN [Suspect]
     Indication: PYREXIA
     Dosage: UNK
     Route: 048
  5. ACETAMINOPHEN [Suspect]
     Indication: PYREXIA
     Dosage: UNK
     Route: 048
  6. ACETAMINOPHEN [Suspect]
     Indication: MYALGIA

REACTIONS (3)
  - TUBULOINTERSTITIAL NEPHRITIS [None]
  - OLIGURIA [None]
  - AZOTAEMIA [None]
